FAERS Safety Report 20884580 (Version 2)
Quarter: 2022Q3

REPORT INFORMATION
  Report Type: Spontaneous
  Country: US (occurrence: US)
  Receive Date: 20220527
  Receipt Date: 20220701
  Transmission Date: 20221026
  Serious: No
  Sender: FDA-Public Use
  Company Number: US-PFIZER INC-202200761773

PATIENT
  Age: 39 Year
  Sex: Male

DRUGS (4)
  1. PAXLOVID [Suspect]
     Active Substance: NIRMATRELVIR\RITONAVIR
     Indication: COVID-19 treatment
     Dosage: UNK
     Dates: start: 20220511, end: 20220515
  2. SIMVASTATIN [Suspect]
     Active Substance: SIMVASTATIN
     Dosage: 20 MG, 1X/DAY
  3. TESTOSTERONE [Concomitant]
     Active Substance: TESTOSTERONE
     Dosage: 5 PUMPS PER DAY
  4. TRELEGY ELLIPTA [Concomitant]
     Active Substance: FLUTICASONE FUROATE\UMECLIDINIUM BROMIDE\VILANTEROL TRIFENATATE
     Dosage: 200

REACTIONS (3)
  - COVID-19 [Recovering/Resolving]
  - Disease recurrence [Recovering/Resolving]
  - Contraindicated product administered [Unknown]

NARRATIVE: CASE EVENT DATE: 20220501
